FAERS Safety Report 6657943-8 (Version None)
Quarter: 2010Q1

REPORT INFORMATION
  Report Type: 
  Country: None (occurrence: None)
  Receive Date: 20100326
  Receipt Date: 20100312
  Transmission Date: 20100710
  Serious: Yes (Hospitalization)
  Sender: FDA-Public Use
  Company Number: 2010AL000017

PATIENT
  Age: 74 Year
  Sex: Male
  Weight: 58.2 kg

DRUGS (2)
  1. PRALATREXATE (PRALATREXATE) [Suspect]
     Indication: DIFFUSE LARGE B-CELL LYMPHOMA
     Dosage: 24 MG; QOW; IV
     Route: 042
     Dates: start: 20091201
  2. GEMCITABINE [Suspect]
     Indication: DIFFUSE LARGE B-CELL LYMPHOMA
     Dosage: 950 MG; QOW; IV
     Route: 042
     Dates: start: 20091201

REACTIONS (9)
  - BACK PAIN [None]
  - INTERNATIONAL NORMALISED RATIO INCREASED [None]
  - MUSCULOSKELETAL CHEST PAIN [None]
  - NAUSEA [None]
  - PNEUMONIA [None]
  - RENAL IMPAIRMENT [None]
  - RESPIRATORY SYNCYTIAL VIRUS INFECTION [None]
  - VIRAL TEST POSITIVE [None]
  - VOMITING [None]
